FAERS Safety Report 14150269 (Version 1)
Quarter: 2017Q4

REPORT INFORMATION
  Report Type: Spontaneous
  Country: US (occurrence: US)
  Receive Date: 20171101
  Receipt Date: 20171101
  Transmission Date: 20180321
  Serious: No
  Sender: FDA-Public Use
  Company Number: US-NOVOPROD-547630

PATIENT
  Age: 86 Year
  Sex: Female
  Weight: 53.7 kg

DRUGS (4)
  1. VAGIFEM LD [Suspect]
     Active Substance: ESTRADIOL
     Dosage: 10 MG TWICE A WEEK
     Route: 067
  2. VITAMINS                           /00067501/ [Concomitant]
     Active Substance: VITAMINS
     Indication: SUPPLEMENTATION THERAPY
  3. VAGIFEM LD [Suspect]
     Active Substance: ESTRADIOL
     Indication: PRODUCT USED FOR UNKNOWN INDICATION
     Dosage: 20MG TO 25MG TWICE A WEEK
     Route: 067
  4. NSAIDS [Concomitant]
     Active Substance: UNSPECIFIED INGREDIENT
     Indication: ARTHRITIS

REACTIONS (2)
  - Bacterial vaginosis [Unknown]
  - Cystitis [Unknown]
